FAERS Safety Report 4680340-1 (Version None)
Quarter: 2005Q2

REPORT INFORMATION
  Report Type: 
  Country: None (occurrence: None)
  Receive Date: 20050601
  Receipt Date: 20050518
  Transmission Date: 20051028
  Serious: Yes (Other)
  Sender: FDA-Public Use
  Company Number: DSA_26455_2005

PATIENT
  Age: 71 Year
  Sex: Female

DRUGS (11)
  1. ENALAPRIL MALEATE [Suspect]
     Indication: HYPERTENSION
     Dosage: 10 MG Q DAY PO
     Route: 048
     Dates: start: 20010101
  2. ENALAPRIL MALEATE [Suspect]
     Indication: HYPERTENSION
     Dosage: 10 MG BID PO
     Route: 048
     Dates: start: 20050329
  3. ENALAPRIL MALEATE [Suspect]
     Indication: HYPERTENSION
     Dosage: 10 MG BID PO
     Route: 048
     Dates: end: 20050328
  4. ALLOPURINOL [Concomitant]
  5. ASPIRIN [Concomitant]
  6. CALCIUM CARBONATE (+) ETIDRONATE SODIUM [Concomitant]
  7. CHOLECALCIFEROL [Concomitant]
  8. ENALAPRIL MALEATE [Concomitant]
  9. METOPROLOL SUCCINATE [Concomitant]
  10. ORLISTAT [Concomitant]
  11. TILIDINE HYDROCHLORIDE [Concomitant]

REACTIONS (46)
  - AGITATION [None]
  - ALOPECIA [None]
  - ANGIOPATHY [None]
  - ARRHYTHMIA [None]
  - ARTHRALGIA [None]
  - BLOOD TRIGLYCERIDES INCREASED [None]
  - BLOOD UREA INCREASED [None]
  - BLOOD URIC ACID INCREASED [None]
  - BONE PAIN [None]
  - BURNING SENSATION [None]
  - CEREBRAL ISCHAEMIA [None]
  - CONDITION AGGRAVATED [None]
  - DEPRESSION [None]
  - DRUG INEFFECTIVE [None]
  - DYSPHAGIA [None]
  - DYSPHONIA [None]
  - DYSPNOEA [None]
  - ERYTHEMA [None]
  - FACE OEDEMA [None]
  - FEELING HOT [None]
  - GAIT DISTURBANCE [None]
  - GINGIVAL ATROPHY [None]
  - GOUT [None]
  - HEADACHE [None]
  - HEPATIC STEATOSIS [None]
  - HYPERCHOLESTEROLAEMIA [None]
  - HYPERTENSION [None]
  - IMMUNE SYSTEM DISORDER [None]
  - INFECTION [None]
  - INFLAMMATION [None]
  - INSOMNIA [None]
  - MYALGIA [None]
  - NERVOUSNESS [None]
  - OEDEMA PERIPHERAL [None]
  - ORAL DISCOMFORT [None]
  - PARAESTHESIA [None]
  - PERIPHERAL COLDNESS [None]
  - PHARMACEUTICAL PRODUCT COMPLAINT [None]
  - PRURITUS [None]
  - RED BLOOD CELL SEDIMENTATION RATE INCREASED [None]
  - RENAL ATROPHY [None]
  - SALIVARY HYPERSECRETION [None]
  - THYROID DISORDER [None]
  - VASCULITIS CEREBRAL [None]
  - VERTIGO [None]
  - VISION BLURRED [None]
